FAERS Safety Report 20709358 (Version 1)
Quarter: 2022Q2

REPORT INFORMATION
  Report Type: Spontaneous
  Country: US (occurrence: None)
  Receive Date: 20220413
  Receipt Date: 20220413
  Transmission Date: 20220720
  Serious: Yes (Hospitalization)
  Sender: FDA-Public Use
  Company Number: None

PATIENT
  Age: 63 Year
  Sex: Female

DRUGS (8)
  1. HYQVIA [Suspect]
     Active Substance: HUMAN IMMUNOGLOBULIN G\HYALURONIDASE RECOMBINANT HUMAN
     Indication: Immunodeficiency common variable
     Dosage: OTHER QUANTITY : 20 GM/200ML;?INFUSE EVERY 4 WEEKS  PUSH 12.SML HY INTO SUB-Q SET AT 1 TO 2 MLS PER
     Dates: start: 20190926
  2. ASPIRIN LOW TAB 81MG EC [Concomitant]
  3. BREO ELLIPTA INH 100-25 [Concomitant]
  4. HYOVIA [Concomitant]
  5. PREVACID [Concomitant]
     Active Substance: LANSOPRAZOLE
  6. SIMVASTATIN [Concomitant]
     Active Substance: SIMVASTATIN
  7. SYNTHROID TAB 50MCG [Concomitant]
  8. ZOLOFT TAB 100MG [Concomitant]

REACTIONS (4)
  - Respiratory failure [None]
  - Chronic obstructive pulmonary disease [None]
  - Dust allergy [None]
  - Seasonal allergy [None]

NARRATIVE: CASE EVENT DATE: 20220323
